FAERS Safety Report 6542817-3 (Version None)
Quarter: 2010Q1

REPORT INFORMATION
  Report Type: 
  Country: None (occurrence: None)
  Receive Date: 20100114
  Receipt Date: 20100106
  Transmission Date: 20100710
  Serious: Yes (Death, Hospitalization)
  Sender: FDA-Public Use
  Company Number: 1000011213

PATIENT
  Age: 81 Year
  Sex: Female

DRUGS (3)
  1. NEBIVOLOL HCL [Suspect]
     Dosage: 1.125 MG (1.125 MG,1 IN 1 D),ORAL
     Route: 048
     Dates: start: 20090101, end: 20090101
  2. LASILIX [Concomitant]
  3. CORDARONE [Suspect]
     Route: 048

REACTIONS (4)
  - BRADYCARDIA [None]
  - CARDIAC DISORDER [None]
  - MULTIPLE DRUG OVERDOSE [None]
  - PAROXYSMAL ARRHYTHMIA [None]
